FAERS Safety Report 18350965 (Version 2)
Quarter: 2020Q4

REPORT INFORMATION
  Report Type: Spontaneous
  Country: IT (occurrence: IT)
  Receive Date: 20201006
  Receipt Date: 20201012
  Transmission Date: 20210114
  Serious: Yes (Life-Threatening, Hospitalization, Other)
  Sender: FDA-Public Use
  Company Number: IT-PFIZER INC-2020379731

PATIENT
  Age: 55 Year
  Sex: Female

DRUGS (4)
  1. BLEOMYCIN [Concomitant]
     Active Substance: BLEOMYCIN SULFATE
     Indication: HODGKIN^S DISEASE
     Dosage: UNK, CYCLIC, 3 (CYCLICAL)
  2. VINBLASTINE [Concomitant]
     Active Substance: VINBLASTINE
     Indication: HODGKIN^S DISEASE
     Dosage: UNK, CYCLIC, 3 (CYCLICAL)
  3. DOXORUBICIN HCL [Suspect]
     Active Substance: DOXORUBICIN HYDROCHLORIDE
     Indication: HODGKIN^S DISEASE
     Dosage: 550 MG/M2, CYCLIC, FREQ:3 {CYCLICAL};
  4. DACARBAZINE. [Concomitant]
     Active Substance: DACARBAZINE
     Indication: HODGKIN^S DISEASE
     Dosage: UNK, CYCLIC,  3 (CYCLICAL)

REACTIONS (4)
  - Cardiac failure chronic [Recovered/Resolved]
  - Cardiomyopathy [Recovering/Resolving]
  - Hypertension [Recovered/Resolved]
  - Congestive cardiomyopathy [Recovered/Resolved]
